FAERS Safety Report 21042565 (Version 1)
Quarter: 2022Q3

REPORT INFORMATION
  Report Type: Other
  Country: US (occurrence: US)
  Receive Date: 20220705
  Receipt Date: 20220705
  Transmission Date: 20221027
  Serious: Yes (Death, Other)
  Sender: FDA-Public Use
  Company Number: US-HLS-202200671

PATIENT
  Age: 66 Year
  Sex: Male

DRUGS (2)
  1. CLOZAPINE [Suspect]
     Active Substance: CLOZAPINE
     Indication: Schizophrenia
     Dosage: 100MG EVERY 12 HOURS
     Route: 048
  2. UNSPECIFIED INGREDIENT [Concomitant]
     Active Substance: UNSPECIFIED INGREDIENT
     Dosage: 400MG
     Route: 065

REACTIONS (8)
  - Abdominal distension [Fatal]
  - Mental status changes [Fatal]
  - Aspiration [Fatal]
  - Faecal vomiting [Fatal]
  - Haematemesis [Fatal]
  - Faecaloma [Fatal]
  - Acute respiratory distress syndrome [Fatal]
  - Septic shock [Fatal]
